FAERS Safety Report 13267448 (Version 1)
Quarter: 2017Q1

REPORT INFORMATION
  Report Type: Spontaneous
  Country: FR (occurrence: FR)
  Receive Date: 20170224
  Receipt Date: 20170224
  Transmission Date: 20170428
  Serious: Yes (Other)
  Sender: FDA-Public Use
  Company Number: FR-AUROBINDO-AUR-APL-2017-30064

PATIENT
  Age: 79 Year
  Sex: Male

DRUGS (3)
  1. SALBUTAMOL [Suspect]
     Active Substance: ALBUTEROL
     Indication: BRONCHIAL OBSTRUCTION
     Dosage: 1 DF, TWO TIMES A DAY
     Dates: start: 20161125, end: 20161125
  2. IPRATROPIUM ARROW [Suspect]
     Active Substance: IPRATROPIUM
     Indication: BRONCHIAL OBSTRUCTION
     Dosage: 1 DF, 3 TIMES A DAY
     Dates: start: 20161125, end: 20161125
  3. METHYLPREDNISOLONE MYLAN           /00049602/ [Suspect]
     Active Substance: METHYLPREDNISOLONE SODIUM SUCCINATE
     Indication: BRONCHIAL OBSTRUCTION
     Dosage: 80 MG, IN SINGLE INTAKE
     Route: 042
     Dates: start: 20161125, end: 20161125

REACTIONS (2)
  - Agitation [Not Recovered/Not Resolved]
  - Aggression [Not Recovered/Not Resolved]

NARRATIVE: CASE EVENT DATE: 20161125
